FAERS Safety Report 14339964 (Version 1)
Quarter: 2017Q4

REPORT INFORMATION
  Report Type: Spontaneous
  Country: US (occurrence: US)
  Receive Date: 20171231
  Receipt Date: 20171231
  Transmission Date: 20180321
  Serious: No
  Sender: FDA-Public Use
  Company Number: US-TEVA-2017-US-839559

PATIENT
  Sex: Female

DRUGS (1)
  1. MICONAZOLE. [Suspect]
     Active Substance: MICONAZOLE
     Indication: VULVOVAGINAL MYCOTIC INFECTION

REACTIONS (6)
  - Vaginal discharge [Unknown]
  - Drug effect decreased [Unknown]
  - Vulvovaginal discomfort [Unknown]
  - Vulvovaginal inflammation [Unknown]
  - Abdominal pain lower [Unknown]
  - Vaginal infection [Unknown]
